FAERS Safety Report 4864382-9 (Version None)
Quarter: 2005Q4

REPORT INFORMATION
  Report Type: 
  Country: None (occurrence: None)
  Receive Date: 20051222
  Receipt Date: 20051017
  Transmission Date: 20060501
  Serious: Yes (Death, Hospitalization, Disabling, Other)
  Sender: FDA-Public Use
  Company Number: US-MERCK-0510USA07738

PATIENT
  Age: 50 Year
  Sex: Male
  Weight: 105 kg

DRUGS (6)
  1. VIOXX [Suspect]
     Indication: RHEUMATOID ARTHRITIS
     Route: 048
     Dates: start: 20000101, end: 20031001
  2. VIOXX [Suspect]
     Route: 048
     Dates: start: 20000101, end: 20031001
  3. NAPROXEN [Concomitant]
     Indication: RHEUMATOID ARTHRITIS
     Route: 065
     Dates: start: 19940101
  4. LORA TAB [Concomitant]
     Route: 065
     Dates: start: 20020101, end: 20030101
  5. LOTREL [Concomitant]
     Route: 065
  6. NORVASC [Concomitant]
     Route: 065
     Dates: start: 20001215, end: 20020918

REACTIONS (6)
  - CARDIAC FAILURE CHRONIC [None]
  - HYPERTENSION [None]
  - MYOCARDIAL INFARCTION [None]
  - OVERDOSE [None]
  - PERIPHERAL VASCULAR DISORDER [None]
  - PULMONARY VASCULAR DISORDER [None]
